FAERS Safety Report 7437732-7 (Version None)
Quarter: 2011Q2

REPORT INFORMATION
  Report Type: 
  Country: None (occurrence: None)
  Receive Date: 20110426
  Receipt Date: 20110425
  Transmission Date: 20111010
  Serious: Yes (Hospitalization)
  Sender: FDA-Public Use
  Company Number: CO-ROCHE-773126

PATIENT
  Sex: Female

DRUGS (4)
  1. ENALAPRIL [Concomitant]
     Indication: HYPERTENSION
     Dosage: FREQUENCY: DAILY
     Route: 048
  2. MYCOPHENOLATE MOFETIL [Suspect]
     Indication: HEART TRANSPLANT
     Dosage: FREQUENCY: DAILY
     Route: 048
     Dates: start: 20110127
  3. OMEPRAZOLE [Concomitant]
     Indication: PROPHYLAXIS
     Dosage: FREQUENCY: DAILY
     Route: 048
  4. PREDNISOLONA [Concomitant]
     Indication: IMMUNOSUPPRESSION
     Route: 048

REACTIONS (1)
  - TRANSPLANT REJECTION [None]
